FAERS Safety Report 6328882-7 (Version None)
Quarter: 2009Q3

REPORT INFORMATION
  Report Type: 
  Country: None (occurrence: None)
  Receive Date: 20090818
  Receipt Date: 20090716
  Transmission Date: 20100115
  Serious: No
  Sender: FDA-Public Use
  Company Number: WAES 0907USA02634

PATIENT
  Sex: Female

DRUGS (4)
  1. JANUVIA [Suspect]
     Indication: DIABETES MELLITUS
     Dosage: 100 MG/DAILY/PO
     Route: 048
     Dates: start: 20090706, end: 20090715
  2. COZAAR [Concomitant]
  3. LIPITOR [Concomitant]
  4. INDAPAMIDE [Concomitant]

REACTIONS (4)
  - COUGH [None]
  - HEADACHE [None]
  - RHINORRHOEA [None]
  - THROAT IRRITATION [None]
